FAERS Safety Report 4319532-X (Version None)
Quarter: 2004Q1

REPORT INFORMATION
  Report Type: 
  Country: None (occurrence: None)
  Receive Date: 20040318
  Receipt Date: 20040318
  Transmission Date: 20041129
  Serious: Yes (Congenital Anomaly)
  Sender: FDA-Public Use
  Company Number: None

PATIENT
  Age: 29 Year
  Sex: Female
  Weight: 61.2356 kg

DRUGS (3)
  1. ACCUTANE [Suspect]
     Indication: ACNE
     Dosage: ORAL
     Route: 048
     Dates: start: 19890701, end: 19900701
  2. CELEXA [Suspect]
     Indication: ANXIETY
     Dosage: 20 MG  DAILY ORAL
     Route: 048
     Dates: start: 20030801, end: 20031128
  3. CELEXA [Suspect]
     Indication: DEPRESSION
     Dosage: 20 MG  DAILY ORAL
     Route: 048
     Dates: start: 20030801, end: 20031128

REACTIONS (4)
  - FOETAL DISORDER [None]
  - MATERNAL DRUGS AFFECTING FOETUS [None]
  - PREGNANCY [None]
  - TRISOMY 18 [None]
